FAERS Safety Report 7216947-7 (Version None)
Quarter: 2010Q4

REPORT INFORMATION
  Report Type: 
  Country: None (occurrence: None)
  Receive Date: 20101223
  Receipt Date: 20101213
  Transmission Date: 20110411
  Serious: Yes (Hospitalization)
  Sender: FDA-Public Use
  Company Number: 2010SP064581

PATIENT
  Age: 50 Year
  Sex: Female

DRUGS (3)
  1. TEMOZOLOMIDE [Suspect]
     Indication: OVARIAN CANCER
     Dosage: PO
     Route: 048
  2. ABT-888 (INVESTIGATIONAL DRUG) [Suspect]
     Indication: OVARIAN CANCER
     Dosage: 40 MG;BID;PO
     Route: 048
  3. TAXOL W/CARBOPLATIN [Concomitant]

REACTIONS (1)
  - FEBRILE NEUTROPENIA [None]
